FAERS Safety Report 6375342-3 (Version None)
Quarter: 2009Q3

REPORT INFORMATION
  Report Type: 
  Country: None (occurrence: None)
  Receive Date: 20090924
  Receipt Date: 20090918
  Transmission Date: 20100115
  Serious: Yes (Hospitalization)
  Sender: FDA-Public Use
  Company Number: B0594828A

PATIENT
  Sex: Female

DRUGS (2)
  1. LANOXIN [Suspect]
     Indication: ATRIAL FIBRILLATION
     Dosage: 1VIAL PER DAY
     Route: 042
     Dates: start: 20090827, end: 20090827
  2. PROPAFENONE HCL [Suspect]
     Indication: ATRIAL FIBRILLATION
     Dosage: 600MG PER DAY
     Route: 048
     Dates: start: 20090827, end: 20090827

REACTIONS (2)
  - HYPOTENSION [None]
  - NODAL ARRHYTHMIA [None]
